FAERS Safety Report 6042144-7 (Version None)
Quarter: 2009Q1

REPORT INFORMATION
  Report Type: 
  Country: None (occurrence: None)
  Receive Date: 20090116
  Receipt Date: 20080527
  Transmission Date: 20090719
  Serious: No
  Sender: FDA-Public Use
  Company Number: US-BAYER-200812321BCC

PATIENT
  Age: 36 Year
  Sex: Male
  Weight: 82 kg

DRUGS (4)
  1. ALEVE (CAPLET) [Suspect]
     Indication: DRUG USE FOR UNKNOWN INDICATION
     Dosage: TOTAL DAILY DOSE: 440 MG  UNIT DOSE: 220 MG
     Route: 048
     Dates: start: 20080523
  2. LEXAPRO [Concomitant]
  3. PRILOSEC [Concomitant]
  4. VICODIN [Concomitant]

REACTIONS (2)
  - EYE PRURITUS [None]
  - LACRIMATION INCREASED [None]
